FAERS Safety Report 9052416 (Version 1)
Quarter: 2013Q1

REPORT INFORMATION
  Report Type: Spontaneous
  Country: FR (occurrence: FR)
  Receive Date: 20130207
  Receipt Date: 20130207
  Transmission Date: 20140127
  Serious: Yes (Hospitalization)
  Sender: FDA-Public Use
  Company Number: FR-VERTEX PHARMACEUTICALS INC.-2013-001651

PATIENT
  Age: 74 Year
  Sex: Female

DRUGS (5)
  1. INCIVO [Suspect]
     Indication: CHRONIC HEPATITIS C
     Dosage: 750 MG, TID
     Route: 048
     Dates: start: 20121011, end: 20130102
  2. COPEGUS [Suspect]
     Indication: CHRONIC HEPATITIS C
     Dosage: DOSAGE FORM: UNKNOWN, 2 DOSES IN THE MORNING AND 3 DOSES IN THE EVENING
     Route: 048
     Dates: start: 20121011
  3. PEGASYS [Suspect]
     Indication: CHRONIC HEPATITIS C
     Dosage: DOSAGE FORM: UNKNOWN
     Route: 058
     Dates: start: 20121011
  4. NEORECORMON [Suspect]
     Indication: ANAEMIA
     Dosage: 30000 IU, QW
     Route: 058
     Dates: start: 20121206
  5. KARDEGIC [Concomitant]

REACTIONS (7)
  - Dysphagia [Unknown]
  - Face oedema [Recovered/Resolved]
  - Eosinophilia [Unknown]
  - Sensory disturbance [Recovered/Resolved]
  - Sensory disturbance [Recovered/Resolved]
  - Rash maculo-papular [Recovered/Resolved]
  - Anaemia [Unknown]
